FAERS Safety Report 18617807 (Version 1)
Quarter: 2020Q4

REPORT INFORMATION
  Report Type: Spontaneous
  Country: US (occurrence: US)
  Receive Date: 20201215
  Receipt Date: 20201215
  Transmission Date: 20210114
  Serious: Yes (Hospitalization)
  Sender: FDA-Public Use
  Company Number: None

PATIENT
  Sex: Male

DRUGS (9)
  1. FOLIC ACID. [Concomitant]
     Active Substance: FOLIC ACID
  2. MULTIPLE VITAMIN [Concomitant]
     Active Substance: VITAMINS
  3. MYCOPHENOLATE [Suspect]
     Active Substance: MYCOPHENOLIC ACID
     Indication: HEART TRANSPLANT
     Route: 048
     Dates: start: 20170518
  4. LIPITOR [Concomitant]
     Active Substance: ATORVASTATIN CALCIUM
  5. VITAMIN D [Concomitant]
     Active Substance: VITAMIN D NOS
  6. DIOVAN [Concomitant]
     Active Substance: VALSARTAN
  7. MAGNESIUM-OX [Concomitant]
  8. TRAMADOL. [Concomitant]
     Active Substance: TRAMADOL
  9. TACROLIMUS. [Concomitant]
     Active Substance: TACROLIMUS

REACTIONS (2)
  - Pulmonary oedema [None]
  - COVID-19 [None]
